FAERS Safety Report 11788763 (Version 1)
Quarter: 2015Q4

REPORT INFORMATION
  Report Type: Spontaneous
  Country: ES (occurrence: ES)
  Receive Date: 20151201
  Receipt Date: 20151201
  Transmission Date: 20160305
  Serious: Yes (Life-Threatening)
  Sender: FDA-Public Use
  Company Number: ES-009507513-1511ESP014584

PATIENT
  Age: 65 Year
  Sex: Male

DRUGS (12)
  1. JANUVIA [Suspect]
     Active Substance: SITAGLIPTIN PHOSPHATE
     Indication: DIABETES MELLITUS
     Dosage: 25 MG, Q24H
     Route: 048
     Dates: start: 20140726, end: 20151117
  2. BISOPROLOL FUMARATE. [Concomitant]
     Active Substance: BISOPROLOL FUMARATE
     Dosage: UNK
     Dates: start: 2009
  3. AAS [Concomitant]
     Active Substance: ASPIRIN
     Dosage: UNK
     Dates: start: 2011
  4. ENALAPRIL DAVUR [Concomitant]
     Dosage: 2.5 MG, Q24H
     Dates: start: 201509
  5. EFIENT [Concomitant]
     Active Substance: PRASUGREL HYDROCHLORIDE
     Dosage: 10 MG, Q24H
     Dates: start: 201509
  6. VERNIES [Concomitant]
     Dosage: 0.4 MG, Q24H
     Dates: start: 20150915
  7. ALPRAZOLAM. [Concomitant]
     Active Substance: ALPRAZOLAM
     Dosage: 0.5 MG, Q8H
     Dates: start: 201006
  8. PARACETAMOL SANDOZ [Concomitant]
     Active Substance: ACETAMINOPHEN
     Dosage: UNK
     Dates: start: 201509
  9. ATORVASTATIN CALCIUM. [Concomitant]
     Active Substance: ATORVASTATIN CALCIUM
     Dosage: 80 MG, Q24H
     Dates: start: 2011
  10. PANTOPRAZOLE SODIUM. [Concomitant]
     Active Substance: PANTOPRAZOLE SODIUM
     Dosage: 40 MG, Q24H
     Dates: start: 2011
  11. LEVOGASTROL [Concomitant]
     Indication: DYSPEPSIA
     Dosage: 25 MG, Q8H
     Route: 048
     Dates: start: 20151021
  12. ROPINIROLE HYDROCHLORIDE. [Concomitant]
     Active Substance: ROPINIROLE HYDROCHLORIDE
     Dosage: UNK

REACTIONS (1)
  - Adenocarcinoma pancreas [Unknown]

NARRATIVE: CASE EVENT DATE: 20151117
